FAERS Safety Report 25346995 (Version 5)
Quarter: 2025Q2

REPORT INFORMATION
  Report Type: Spontaneous
  Country: KZ (occurrence: KZ)
  Receive Date: 20250522
  Receipt Date: 20250624
  Transmission Date: 20250717
  Serious: Yes (Hospitalization)
  Sender: Unknown Manufacturer
  Company Number: KZ-MIRUM PHARMACEUTICALS, INC.-KZ-MIR-25-00271

PATIENT

DRUGS (2)
  1. LIVMARLI [Suspect]
     Active Substance: MARALIXIBAT CHLORIDE
     Indication: Alagille syndrome
     Dosage: 0.9 MILLILITER, QD
     Route: 048
     Dates: start: 202501, end: 202503
  2. LIVMARLI [Suspect]
     Active Substance: MARALIXIBAT CHLORIDE
     Dosage: 0.9 MILLILITER, QD
     Route: 048
     Dates: start: 202503

REACTIONS (2)
  - Intestinal obstruction [Recovered/Resolved]
  - Bile acids increased [Recovering/Resolving]

NARRATIVE: CASE EVENT DATE: 20250308
